FAERS Safety Report 7750045-9 (Version None)
Quarter: 2011Q3

REPORT INFORMATION
  Report Type: 
  Country: None (occurrence: None)
  Receive Date: 20110914
  Receipt Date: 20110907
  Transmission Date: 20111222
  Serious: Yes (Hospitalization)
  Sender: FDA-Public Use
  Company Number: IE-AMGEN-IRLSP2011039682

PATIENT
  Age: 36 Year
  Sex: Male
  Weight: 26 kg

DRUGS (6)
  1. AMITRIPTYLINE HCL [Concomitant]
     Dosage: 10 MG, UNK
  2. ZYDOL                              /00599202/ [Concomitant]
     Dosage: 100 MG, UNK
  3. LOSEC                              /00661201/ [Concomitant]
     Dosage: 20 MG, UNK
  4. PROLIA [Suspect]
     Indication: OSTEOPOROSIS
     Dosage: 60 MG, UNK
     Dates: start: 20110309
  5. NAPROXEN [Concomitant]
  6. DELTACORTRIL                       /00016201/ [Concomitant]
     Dosage: 5 MG, UNK

REACTIONS (5)
  - JUVENILE ARTHRITIS [None]
  - HYPERHIDROSIS [None]
  - WEIGHT DECREASED [None]
  - INFLAMMATORY MARKER INCREASED [None]
  - LETHARGY [None]
